FAERS Safety Report 11705848 (Version 1)
Quarter: 2015Q4

REPORT INFORMATION
  Report Type: Spontaneous
  Country: US (occurrence: US)
  Receive Date: 20151106
  Receipt Date: 20151106
  Transmission Date: 20160304
  Serious: No
  Sender: FDA-Public Use
  Company Number: US-JNJFOC-20151005912

PATIENT

DRUGS (2)
  1. METHYLPHENIDATE HYDROCHLORIDE. [Suspect]
     Active Substance: METHYLPHENIDATE HYDROCHLORIDE
     Indication: FATIGUE
     Route: 048
  2. METHYLPHENIDATE HYDROCHLORIDE. [Suspect]
     Active Substance: METHYLPHENIDATE HYDROCHLORIDE
     Indication: FATIGUE
     Dosage: IN AM
     Route: 048

REACTIONS (7)
  - Product use issue [Unknown]
  - Palpitations [Unknown]
  - Off label use [Unknown]
  - Decreased appetite [Unknown]
  - Insomnia [Unknown]
  - Restlessness [Unknown]
  - Drug ineffective for unapproved indication [Unknown]
